FAERS Safety Report 5932153-8 (Version None)
Quarter: 2008Q4

REPORT INFORMATION
  Report Type: 
  Country: None (occurrence: None)
  Receive Date: 20081022
  Receipt Date: 20081009
  Transmission Date: 20090506
  Serious: Yes (Other)
  Sender: FDA-Public Use
  Company Number: 08-048

PATIENT

DRUGS (1)
  1. CEFTRIAXONE [Suspect]

REACTIONS (1)
  - STATUS EPILEPTICUS [None]
